FAERS Safety Report 18792792 (Version 1)
Quarter: 2021Q1

REPORT INFORMATION
  Report Type: Spontaneous
  Country: JP (occurrence: JP)
  Receive Date: 20210127
  Receipt Date: 20210127
  Transmission Date: 20210419
  Serious: Yes (Death, Other)
  Sender: FDA-Public Use
  Company Number: JP-ASTELLAS-2021US002555

PATIENT
  Age: 75 Year
  Sex: Female
  Weight: 54 kg

DRUGS (44)
  1. ACTEMRA [Suspect]
     Active Substance: TOCILIZUMAB
     Dosage: 162 MG, Q1WK
     Route: 058
     Dates: start: 20150120, end: 20150217
  2. RINDERON [BETAMETHASONE] [Suspect]
     Active Substance: BETAMETHASONE
     Dosage: 5 MG, ONCE DAILY (TAPARED FROM 5.5MG TO 2.5MG)
     Route: 042
     Dates: start: 20141028, end: 20141104
  3. RINDERON [BETAMETHASONE] [Suspect]
     Active Substance: BETAMETHASONE
     Dosage: 5.5 MG, ONCE DAILY (TAPARED FROM 5.5MG TO 2.5MG)
     Route: 042
     Dates: start: 20141107, end: 20141122
  4. METHYLPREDNISOLONE SODIUM SUCCINATE. [Suspect]
     Active Substance: METHYLPREDNISOLONE SODIUM SUCCINATE
     Route: 041
     Dates: start: 20141014, end: 20141016
  5. METHYLPREDNISOLONE SODIUM SUCCINATE. [Suspect]
     Active Substance: METHYLPREDNISOLONE SODIUM SUCCINATE
     Route: 041
     Dates: start: 20150102, end: 20150104
  6. LASIX [Concomitant]
     Active Substance: FUROSEMIDE
     Indication: PRODUCT USED FOR UNKNOWN INDICATION
     Dosage: UNK UNK, UNKNOWN FREQ.
     Route: 065
  7. TRESIBA [Concomitant]
     Active Substance: INSULIN DEGLUDEC
     Indication: PRODUCT USED FOR UNKNOWN INDICATION
     Dosage: UNK UNK, UNKNOWN FREQ.
     Route: 065
  8. COLCHICINE. [Concomitant]
     Active Substance: COLCHICINE
     Indication: PRODUCT USED FOR UNKNOWN INDICATION
     Dosage: UNK UNK, UNKNOWN FREQ.
     Route: 065
  9. RINDERON [BETAMETHASONE] [Suspect]
     Active Substance: BETAMETHASONE
     Dosage: 5 MG, ONCE DAILY (TAPARED FROM 5.5MG TO 2.5MG)
     Route: 042
     Dates: start: 20150117, end: 20150123
  10. RINDERON [BETAMETHASONE] [Suspect]
     Active Substance: BETAMETHASONE
     Dosage: 3.5 MG, ONCE DAILY (TAPARED FROM 5.5MG TO 2.5MG)
     Route: 042
     Dates: start: 20150222, end: 20150224
  11. METHYLPREDNISOLONE SODIUM SUCCINATE. [Suspect]
     Active Substance: METHYLPREDNISOLONE SODIUM SUCCINATE
     Route: 041
     Dates: start: 20141104, end: 20141106
  12. VALIXA [Suspect]
     Active Substance: VALGANCICLOVIR
     Indication: BRONCHOPULMONARY ASPERGILLOSIS
     Route: 048
     Dates: start: 20150219, end: 20150227
  13. NEXIUM I.V. [Concomitant]
     Active Substance: ESOMEPRAZOLE SODIUM
     Indication: PRODUCT USED FOR UNKNOWN INDICATION
     Dosage: UNK UNK, UNKNOWN FREQ.
     Route: 065
  14. RITUXAN [Concomitant]
     Active Substance: RITUXIMAB
     Indication: PRODUCT USED FOR UNKNOWN INDICATION
     Dosage: UNK UNK, UNKNOWN FREQ.
     Route: 065
  15. RINDERON [BETAMETHASONE] [Suspect]
     Active Substance: BETAMETHASONE
     Dosage: 4 MG, ONCE DAILY (TAPARED FROM 5.5MG TO 2.5MG)
     Route: 042
     Dates: start: 20150210, end: 20150221
  16. RED BLOOD CELLS, CONCENTRATED [Concomitant]
     Active Substance: HUMAN RED BLOOD CELL
     Indication: PRODUCT USED FOR UNKNOWN INDICATION
     Dosage: UNK UNK, UNKNOWN FREQ.
     Route: 065
  17. PAZUFLOXACIN MESILATE [Concomitant]
     Active Substance: PAZUFLOXACIN MESILATE
     Indication: PRODUCT USED FOR UNKNOWN INDICATION
     Dosage: UNK UNK, UNKNOWN FREQ.
     Route: 065
  18. DENOSINE [GANCICLOVIR SODIUM] [Concomitant]
     Indication: PRODUCT USED FOR UNKNOWN INDICATION
     Dosage: UNK UNK, UNKNOWN FREQ.
     Route: 065
  19. RINDERON [BETAMETHASONE] [Suspect]
     Active Substance: BETAMETHASONE
     Dosage: 5.5 MG, ONCE DAILY (TAPARED FROM 5.5MG TO 2.5MG)
     Route: 042
     Dates: start: 20150105, end: 20150116
  20. PURSENNID?IN [Concomitant]
     Indication: PRODUCT USED FOR UNKNOWN INDICATION
     Dosage: UNK UNK, UNKNOWN FREQ.
     Route: 065
  21. ACTEMRA [Suspect]
     Active Substance: TOCILIZUMAB
     Indication: STILL^S DISEASE
     Route: 058
     Dates: start: 20150106, end: 20150106
  22. RINDERON [BETAMETHASONE] [Suspect]
     Active Substance: BETAMETHASONE
     Indication: STILL^S DISEASE
     Dosage: 5.5 MG, ONCE DAILY (TAPARED FROM 5.5MG TO 2.5MG)
     Route: 042
     Dates: start: 20141002, end: 20141013
  23. RINDERON [BETAMETHASONE] [Suspect]
     Active Substance: BETAMETHASONE
     Dosage: 5 MG, ONCE DAILY (TAPARED FROM 5.5MG TO 2.5MG)
     Route: 042
     Dates: start: 20141123, end: 20141204
  24. RINDERON [BETAMETHASONE] [Suspect]
     Active Substance: BETAMETHASONE
     Dosage: 4 MG, ONCE DAILY (TAPARED FROM 5.5MG TO 2.5MG)
     Route: 042
     Dates: start: 20141205, end: 20141219
  25. METHYLPREDNISOLON [METHYLPREDNISOLONE] [Suspect]
     Active Substance: METHYLPREDNISOLONE
     Indication: STILL^S DISEASE
     Route: 048
     Dates: start: 201408, end: 201409
  26. DORIPENEM. [Concomitant]
     Active Substance: DORIPENEM
     Indication: PRODUCT USED FOR UNKNOWN INDICATION
     Dosage: UNK UNK, UNKNOWN FREQ.
     Route: 065
  27. MAGMITT [Concomitant]
     Active Substance: MAGNESIUM OXIDE
     Indication: PRODUCT USED FOR UNKNOWN INDICATION
     Dosage: UNK UNK, UNKNOWN FREQ.
     Route: 065
  28. AMPHOTERICIN B, LIPOSOME [Suspect]
     Active Substance: AMPHOTERICIN B
     Indication: BRONCHOPULMONARY ASPERGILLOSIS
     Dosage: 125 MG, QD
     Route: 065
     Dates: start: 20150224, end: 20150226
  29. RINDERON [BETAMETHASONE] [Suspect]
     Active Substance: BETAMETHASONE
     Dosage: 5.5 MG, ONCE DAILY (TAPARED FROM 5.5MG TO 2.5MG)
     Route: 042
     Dates: start: 20141017, end: 20141027
  30. RINDERON [BETAMETHASONE] [Suspect]
     Active Substance: BETAMETHASONE
     Dosage: 5.5 MG, ONCE DAILY (TAPARED FROM 5.5MG TO 2.5MG)
     Route: 042
     Dates: start: 20141230, end: 20150102
  31. RINDERON [BETAMETHASONE] [Suspect]
     Active Substance: BETAMETHASONE
     Dosage: 3 MG, ONCE DAILY (TAPARED FROM 5.5MG TO 2.5MG)
     Route: 042
     Dates: start: 20150225, end: 20150228
  32. CELESTAMINE [Suspect]
     Active Substance: BETAMETHASONE\DEXCHLORPHENIRAMINE MALEATE
     Indication: STILL^S DISEASE
     Route: 048
     Dates: start: 20140827, end: 201408
  33. MEROPENEM. [Concomitant]
     Active Substance: MEROPENEM
     Indication: PRODUCT USED FOR UNKNOWN INDICATION
     Dosage: UNK UNK, UNKNOWN FREQ.
     Route: 065
  34. HUMALOG [Concomitant]
     Active Substance: INSULIN LISPRO
     Indication: PRODUCT USED FOR UNKNOWN INDICATION
     Dosage: UNK UNK, UNKNOWN FREQ.
     Route: 065
  35. ALBUMINAR [Concomitant]
     Active Substance: ALBUMIN HUMAN
     Indication: PRODUCT USED FOR UNKNOWN INDICATION
     Dosage: UNK UNK, UNKNOWN FREQ.
     Route: 065
  36. VENOGLOBULIN [Concomitant]
     Active Substance: HUMAN IMMUNOGLOBULIN G
     Indication: PRODUCT USED FOR UNKNOWN INDICATION
     Dosage: UNK UNK, UNKNOWN FREQ.
     Route: 065
  37. RINDERON [BETAMETHASONE] [Suspect]
     Active Substance: BETAMETHASONE
     Dosage: 4.5 MG, ONCE DAILY (TAPARED FROM 5.5MG TO 2.5MG)
     Route: 042
     Dates: start: 20150124, end: 20150209
  38. ALDACTONE A [Concomitant]
     Active Substance: SPIRONOLACTONE
     Indication: PRODUCT USED FOR UNKNOWN INDICATION
     Dosage: UNK UNK, UNKNOWN FREQ.
     Route: 065
  39. HUMAN NORMAL IMMUNOGLOBULIN [Concomitant]
     Active Substance: HUMAN IMMUNOGLOBULIN G
     Indication: PRODUCT USED FOR UNKNOWN INDICATION
     Dosage: UNK UNK, UNKNOWN FREQ.
     Route: 065
  40. FLUCONAZOLE. [Concomitant]
     Active Substance: FLUCONAZOLE
     Indication: PRODUCT USED FOR UNKNOWN INDICATION
     Dosage: UNK UNK, UNKNOWN FREQ.
     Route: 065
  41. RINDERON [BETAMETHASONE] [Suspect]
     Active Substance: BETAMETHASONE
     Dosage: 3.5 MG, ONCE DAILY (TAPARED FROM 5.5MG TO 2.5MG)
     Route: 042
     Dates: start: 20141220, end: 20141229
  42. RINDERON [BETAMETHASONE] [Suspect]
     Active Substance: BETAMETHASONE
     Dosage: 2.5 MG, ONCE DAILY (TAPARED FROM 5.5MG TO 2.5MG)
     Route: 042
     Dates: start: 20150301, end: 20150302
  43. METHYLPREDNISOLONE SODIUM SUCCINATE. [Suspect]
     Active Substance: METHYLPREDNISOLONE SODIUM SUCCINATE
     Indication: STILL^S DISEASE
     Route: 041
     Dates: start: 20140929, end: 20141001
  44. HUMAN SERUM ALBUMIN [Concomitant]
     Active Substance: ALBUMIN HUMAN
     Indication: PRODUCT USED FOR UNKNOWN INDICATION
     Dosage: UNK UNK, UNKNOWN FREQ.
     Route: 065

REACTIONS (10)
  - Hypovolaemic shock [Fatal]
  - Pyrexia [Fatal]
  - Enterocolitis [Fatal]
  - Cytomegalovirus enterocolitis [Fatal]
  - Intestinal perforation [Fatal]
  - Peritonitis [Fatal]
  - Septic shock [Fatal]
  - Pancytopenia [Fatal]
  - Multiple organ dysfunction syndrome [Fatal]
  - Off label use [Fatal]

NARRATIVE: CASE EVENT DATE: 2015
